FAERS Safety Report 7723422-X (Version None)
Quarter: 2011Q3

REPORT INFORMATION
  Report Type: 
  Country: None (occurrence: None)
  Receive Date: 20110901
  Receipt Date: 20110829
  Transmission Date: 20111222
  Serious: No
  Sender: FDA-Public Use
  Company Number: US-PFIZER INC-2011201727

PATIENT

DRUGS (1)
  1. LIPITOR [Suspect]
     Dosage: 10 MG / DAY

REACTIONS (1)
  - ASTHENIA [None]
